FAERS Safety Report 7958780-4 (Version None)
Quarter: 2011Q4

REPORT INFORMATION
  Report Type: 
  Country: None (occurrence: None)
  Receive Date: 20111206
  Receipt Date: 20111201
  Transmission Date: 20120403
  Serious: Yes (Death, Hospitalization, Other)
  Sender: FDA-Public Use
  Company Number: US-JNJFOC-20111012463

PATIENT
  Sex: Male
  Weight: 86.2 kg

DRUGS (23)
  1. PREDNISONE TAB [Suspect]
     Indication: PROSTATE CANCER
     Route: 048
     Dates: start: 20110723, end: 20111025
  2. ZOFRAN [Concomitant]
     Indication: NAUSEA
     Route: 042
  3. OXYCODONE HCL [Concomitant]
     Indication: PAIN
     Route: 048
  4. FLOMAX [Concomitant]
     Route: 048
  5. ATORVASTATIN [Concomitant]
     Route: 048
  6. ZOFRAN [Concomitant]
     Indication: VOMITING
     Route: 042
  7. ZOSYN [Concomitant]
     Route: 065
  8. NEURONTIN [Concomitant]
     Indication: NEUROPATHY PERIPHERAL
     Route: 048
     Dates: start: 20110815, end: 20111010
  9. SENOKOT [Concomitant]
     Indication: CONSTIPATION
     Route: 048
  10. LIPITOR [Concomitant]
     Indication: HYPERCHOLESTEROLAEMIA
     Route: 048
     Dates: start: 20060101
  11. IPRATROPIUM BROMIDE [Concomitant]
     Route: 065
  12. COUMADIN [Concomitant]
     Indication: ANTICOAGULANT THERAPY
     Route: 048
     Dates: start: 20090101
  13. ACETAMINOPHEN [Concomitant]
     Indication: PYREXIA
     Route: 048
  14. CALCIUM W/VITAMIN D [Concomitant]
     Indication: MEDICAL DIET
     Route: 048
     Dates: start: 20090101
  15. FLOMAX [Concomitant]
     Indication: URINE FLOW DECREASED
     Route: 048
     Dates: start: 20090101
  16. SUNITINIB MALATE [Suspect]
     Indication: PROSTATE CANCER
     Route: 065
     Dates: start: 20111011, end: 20111025
  17. LOVENOX [Concomitant]
     Route: 058
  18. LEVALBUTEROL HCL [Concomitant]
     Route: 065
  19. LEVOFLOXACIN [Concomitant]
     Route: 042
  20. ABIRATERONE ACETATE [Suspect]
     Route: 048
  21. ABIRATERONE ACETATE [Suspect]
     Indication: PROSTATE CANCER
     Route: 048
     Dates: start: 20110723, end: 20111025
  22. AMBIEN [Concomitant]
     Indication: SLEEP DISORDER
     Dosage: TREATMENT FOR GREATER THAN 5 YEARS
     Route: 048
  23. HYDROCODONE [Concomitant]
     Indication: PAIN
     Dosage: EVERY 4 HOURS AS REQUIRED; ONLY 1 AT NIGHT FOR THOSE DYSESTHESIAS STARTED 2009
     Route: 048

REACTIONS (2)
  - HYPOTENSION [None]
  - PNEUMONIA [None]
